FAERS Safety Report 15215215 (Version 1)
Quarter: 2018Q3

REPORT INFORMATION
  Report Type: Spontaneous
  Country: US (occurrence: US)
  Receive Date: 20180703
  Receipt Date: 20180703
  Transmission Date: 20181010
  Serious: No
  Sender: FDA-Public Use
  Company Number: None

PATIENT
  Age: 74 Year
  Sex: Female

DRUGS (1)
  1. CAPECITABINE TAB [Suspect]
     Active Substance: CAPECITABINE
     Dates: start: 20180628, end: 20180703

REACTIONS (3)
  - Abdominal distension [None]
  - Flatulence [None]
  - Abdominal pain [None]
